FAERS Safety Report 12319959 (Version 1)
Quarter: 2016Q2

REPORT INFORMATION
  Report Type: Spontaneous
  Country: US (occurrence: US)
  Receive Date: 20160429
  Receipt Date: 20160429
  Transmission Date: 20160815
  Serious: No
  Sender: FDA-Public Use
  Company Number: US-ROCHE-1632373

PATIENT
  Sex: Female
  Weight: 56.75 kg

DRUGS (4)
  1. TORADIUR [Concomitant]
     Active Substance: TORSEMIDE
     Indication: PULMONARY HYPERTENSION
     Route: 048
  2. OMEPRAZOLE. [Concomitant]
     Active Substance: OMEPRAZOLE
     Indication: GASTROOESOPHAGEAL REFLUX DISEASE
     Route: 048
  3. ESBRIET [Suspect]
     Active Substance: PIRFENIDONE
     Indication: PULMONARY HYPERTENSION
     Dosage: 3 CAPSULES THRICE A DAY
     Route: 048
     Dates: start: 20150623, end: 20150817
  4. PREDNISONE. [Concomitant]
     Active Substance: PREDNISONE
     Indication: PULMONARY FIBROSIS
     Route: 048

REACTIONS (1)
  - Diarrhoea [Recovered/Resolved]
